FAERS Safety Report 25119033 (Version 1)
Quarter: 2025Q1

REPORT INFORMATION
  Report Type: Spontaneous
  Country: US (occurrence: None)
  Receive Date: 20250324
  Receipt Date: 20250324
  Transmission Date: 20250408
  Serious: Yes (Death)
  Sender: FDA-CTU
  Company Number: None

PATIENT
  Age: 79 Year
  Sex: Female
  Weight: 59.42 kg

DRUGS (7)
  1. MYLOTARG [Suspect]
     Active Substance: GEMTUZUMAB OZOGAMICIN
     Indication: Acute myeloid leukaemia
     Route: 041
     Dates: start: 20250313
  2. ceftriaxone (ROCEPHIN)TAGRAXOFUSP-ERZA [Concomitant]
     Indication: Acute myeloid leukaemia
     Route: 041
     Dates: start: 20250317
  3. MORPHINE 10 MG/ML INJECTION [Concomitant]
  4. SODIUM CHLORIDE [Concomitant]
     Active Substance: SODIUM CHLORIDE
  5. hydrocortisone sodium succinate (SOLU-CORTEF) [Concomitant]
  6. EPINEPHRINE [Concomitant]
     Active Substance: EPINEPHRINE
  7. ROXICODONE [Concomitant]
     Active Substance: OXYCODONE HYDROCHLORIDE

REACTIONS (20)
  - Hypofibrinogenaemia [None]
  - Flank pain [None]
  - Chills [None]
  - Infusion related reaction [None]
  - Atrial fibrillation [None]
  - Blood pressure systolic increased [None]
  - Incoherent [None]
  - Confusional state [None]
  - Thrombocytopenia [None]
  - White blood cell count decreased [None]
  - International normalised ratio decreased [None]
  - Prothrombin time prolonged [None]
  - Activated partial thromboplastin time prolonged [None]
  - Haemoglobin decreased [None]
  - Neutrophil count decreased [None]
  - Cerebral haemorrhage [None]
  - Embolic stroke [None]
  - Disseminated intravascular coagulation [None]
  - Hypokalaemia [None]
  - Alanine aminotransferase increased [None]

NARRATIVE: CASE EVENT DATE: 20250322
